FAERS Safety Report 19098558 (Version 2)
Quarter: 2021Q2

REPORT INFORMATION
  Report Type: Spontaneous
  Country: IN (occurrence: IN)
  Receive Date: 20210406
  Receipt Date: 20210524
  Transmission Date: 20210717
  Serious: Yes (Other)
  Sender: FDA-Public Use
  Company Number: IN-PFIZER INC-2020126296

PATIENT
  Age: 44 Year
  Sex: Female

DRUGS (1)
  1. PALBACE [Suspect]
     Active Substance: PALBOCICLIB
     Indication: BREAST CANCER METASTATIC
     Dosage: 125 MG, 1X/DAY
     Route: 048
     Dates: start: 20181129

REACTIONS (6)
  - Malaise [Unknown]
  - Lower limb fracture [Unknown]
  - Fall [Unknown]
  - Bone pain [Unknown]
  - Bedridden [Unknown]
  - Somnolence [Unknown]
